FAERS Safety Report 19109950 (Version 2)
Quarter: 2021Q2

REPORT INFORMATION
  Report Type: Spontaneous
  Country: US (occurrence: US)
  Receive Date: 20210409
  Receipt Date: 20210506
  Transmission Date: 20210717
  Serious: No
  Sender: FDA-Public Use
  Company Number: US-SAGE-2021SAGE000031

PATIENT
  Age: 43 Year
  Sex: Female

DRUGS (2)
  1. ZULRESSO [Suspect]
     Active Substance: BREXANOLONE
     Indication: PERINATAL DEPRESSION
     Dosage: 20 G, 2.13 ML/HR ? 6.38 ML/HR
     Route: 042
     Dates: start: 20200615, end: 20200617
  2. ZULRESSO [Suspect]
     Active Substance: BREXANOLONE
     Dosage: 22 G, 2.13 ML/HR ? 6.38 ML/HR
     Route: 042
     Dates: start: 20200617, end: 20200617

REACTIONS (3)
  - Product administration interrupted [Recovered/Resolved]
  - Infusion site erythema [Recovered/Resolved]
  - Infusion site pain [Recovered/Resolved]

NARRATIVE: CASE EVENT DATE: 202006
